FAERS Safety Report 5809902-2 (Version None)
Quarter: 2008Q3

REPORT INFORMATION
  Report Type: 
  Country: None (occurrence: None)
  Receive Date: 20080715
  Receipt Date: 20080709
  Transmission Date: 20090109
  Serious: Yes (Other)
  Sender: FDA-Public Use
  Company Number: GB-TEVA-174057ISR

PATIENT
  Age: 39 Year

DRUGS (1)
  1. FLUOXETINE [Suspect]
     Indication: DEPRESSION
     Route: 048
     Dates: start: 20080116

REACTIONS (1)
  - GOUT [None]
